FAERS Safety Report 4294297-9 (Version None)
Quarter: 2004Q1

REPORT INFORMATION
  Report Type: 
  Country: None (occurrence: None)
  Receive Date: 20040212
  Receipt Date: 20040212
  Transmission Date: 20041129
  Serious: No
  Sender: FDA-Public Use
  Company Number: None

PATIENT
  Age: 42 Year
  Sex: Female
  Weight: 65 kg

DRUGS (14)
  1. VANCOMYCIN [Suspect]
     Indication: WOUND INFECTION
     Dosage: 1 GM Q 24
     Dates: start: 20031205
  2. VICODIN [Concomitant]
  3. NS 250ML BRAUN [Suspect]
  4. PEPCID [Concomitant]
  5. 2NSO4 [Concomitant]
  6. MULTIVIT [Concomitant]
  7. VITAMIN C [Concomitant]
  8. DILANTIN [Concomitant]
  9. 70/30 NOVOLIN [Concomitant]
  10. XANAX [Concomitant]
  11. ATIVAN [Concomitant]
  12. MONOPRIL [Concomitant]
  13. FESO4 [Concomitant]
  14. IMODIUM [Concomitant]

REACTIONS (4)
  - DIARRHOEA [None]
  - OEDEMA [None]
  - PRURITUS [None]
  - SENSATION OF BLOCK IN EAR [None]
